FAERS Safety Report 15502313 (Version 1)
Quarter: 2018Q4

REPORT INFORMATION
  Report Type: Spontaneous
  Country: US (occurrence: US)
  Receive Date: 20181015
  Receipt Date: 20181015
  Transmission Date: 20190205
  Serious: No
  Sender: FDA-Public Use
  Company Number: US-AMGEN INC.-USASP2018120152

PATIENT
  Age: 41 Year
  Sex: Female

DRUGS (3)
  1. AIMOVIG [Suspect]
     Active Substance: ERENUMAB-AOOE
     Indication: MIGRAINE
     Dosage: 70 MG, QMO
     Route: 065
     Dates: start: 20180827
  2. TOPAMAX [Concomitant]
     Active Substance: TOPIRAMATE
     Dosage: UNK
  3. LAMICTAL [Concomitant]
     Active Substance: LAMOTRIGINE
     Dosage: UNK

REACTIONS (10)
  - Wrong technique in product usage process [Unknown]
  - Nasal congestion [Unknown]
  - Sleep disorder due to general medical condition, insomnia type [Not Recovered/Not Resolved]
  - Cough [Unknown]
  - Eye pruritus [Unknown]
  - Rhinorrhoea [Unknown]
  - Malaise [Unknown]
  - Upper-airway cough syndrome [Unknown]
  - Sneezing [Unknown]
  - Throat irritation [Unknown]

NARRATIVE: CASE EVENT DATE: 20180827
